FAERS Safety Report 7052037-4 (Version None)
Quarter: 2010Q4

REPORT INFORMATION
  Report Type: 
  Country: None (occurrence: None)
  Receive Date: 20101018
  Receipt Date: 20101018
  Transmission Date: 20110411
  Serious: Yes (Hospitalization)
  Sender: FDA-Public Use
  Company Number: None

PATIENT
  Sex: Male
  Weight: 81.64 kg

DRUGS (5)
  1. CYTARABINE [Suspect]
     Dosage: 2448 MG
  2. MERCAPTOPURINE [Suspect]
     Dosage: 2800 MG
  3. METHOTREXATE [Suspect]
     Dosage: 45 MG
  4. PEG-L ASPARAGINASE (K-H) [Suspect]
     Dosage: 10200 MG
  5. VINCRISTINE SULFATE [Suspect]
     Dosage: 12.24 MG

REACTIONS (1)
  - STAPHYLOCOCCAL BACTERAEMIA [None]
